FAERS Safety Report 9648587 (Version 1)
Quarter: 2013Q4

REPORT INFORMATION
  Report Type: Spontaneous
  Country: BR (occurrence: BR)
  Receive Date: 20131028
  Receipt Date: 20131028
  Transmission Date: 20140711
  Serious: Yes (Hospitalization, Other)
  Sender: FDA-Public Use
  Company Number: BR-PFIZER INC-2013301413

PATIENT
  Age: 79 Year
  Sex: Female

DRUGS (3)
  1. XALACOM [Suspect]
     Indication: GLAUCOMA
     Dosage: 1 DROP IN EACH EYE PER DAY
     Route: 047
     Dates: start: 201309
  2. XALATAN [Suspect]
     Indication: GLAUCOMA
     Dosage: UNK
     Route: 047
     Dates: start: 201307, end: 201309
  3. XARELTO [Concomitant]

REACTIONS (2)
  - Cerebrovascular accident [Unknown]
  - Thrombosis [Unknown]
